FAERS Safety Report 8120635-2 (Version None)
Quarter: 2012Q1

REPORT INFORMATION
  Report Type: 
  Country: None (occurrence: None)
  Receive Date: 20120207
  Receipt Date: 20120127
  Transmission Date: 20120608
  Serious: No
  Sender: FDA-Public Use
  Company Number: JP-ASTRAZENECA-2012SE03662

PATIENT
  Age: 82 Year
  Sex: Male

DRUGS (1)
  1. MEROPENEM [Suspect]
     Indication: PNEUMONIA
     Route: 042
     Dates: start: 20110830, end: 20110908

REACTIONS (2)
  - HEPATIC FUNCTION ABNORMAL [None]
  - DRUG ERUPTION [None]
